FAERS Safety Report 4615809-9 (Version None)
Quarter: 2005Q1

REPORT INFORMATION
  Report Type: 
  Country: None (occurrence: None)
  Receive Date: 20050317
  Receipt Date: 20050302
  Transmission Date: 20050727
  Serious: Yes (Hospitalization)
  Sender: FDA-Public Use
  Company Number: 2005-BP-03287BP

PATIENT
  Sex: Female

DRUGS (2)
  1. CLONIDINE [Suspect]
     Dosage: 0.2 MG (0.2 MG, 1 IN 1 D); 0.3 MG BID (0.3 MG)
     Dates: start: 20040901, end: 20041101
  2. CLONIDINE [Suspect]
     Dosage: 0.2 MG (0.2 MG, 1 IN 1 D); 0.3 MG BID (0.3 MG)
     Dates: start: 20041101

REACTIONS (2)
  - ALOPECIA [None]
  - KNEE ARTHROPLASTY [None]
